FAERS Safety Report 15680814 (Version 1)
Quarter: 2018Q4

REPORT INFORMATION
  Report Type: Spontaneous
  Country: US (occurrence: US)
  Receive Date: 20181202
  Receipt Date: 20181202
  Transmission Date: 20190205
  Serious: Yes (Other)
  Sender: FDA-Public Use
  Company Number: None

PATIENT
  Age: 58 Year
  Sex: Female
  Weight: 78.75 kg

DRUGS (14)
  1. VYTORIN [Concomitant]
     Active Substance: EZETIMIBE\SIMVASTATIN
  2. LYRICA [Concomitant]
     Active Substance: PREGABALIN
  3. VITAMIN D [Concomitant]
     Active Substance: CHOLECALCIFEROL
  4. AMARYL [Concomitant]
     Active Substance: GLIMEPIRIDE
  5. METFORMIN [Concomitant]
     Active Substance: METFORMIN HYDROCHLORIDE
  6. VIVELLE [Concomitant]
     Active Substance: ESTRADIOL
  7. CENTRUM SILVER WOMEN [Concomitant]
  8. BASAGLAR [Suspect]
     Active Substance: INSULIN GLARGINE
     Indication: TYPE 2 DIABETES MELLITUS
     Dosage: QUANTITY:2 INJECTION(S);OTHER ROUTE:INJECTED INTO THE BELLY AREA?
     Dates: start: 20181029, end: 20181130
  9. PREVACID [Concomitant]
     Active Substance: LANSOPRAZOLE
  10. ZYRTEC [Concomitant]
     Active Substance: CETIRIZINE HYDROCHLORIDE
  11. NOVOFINE [Concomitant]
     Active Substance: INSULIN NOS
  12. METOPROLOL. [Concomitant]
     Active Substance: METOPROLOL
  13. SYNTHROID [Concomitant]
     Active Substance: LEVOTHYROXINE SODIUM
  14. NATUREMADE SUPER B-COMPLEX [Concomitant]

REACTIONS (1)
  - Thyroid neoplasm [None]

NARRATIVE: CASE EVENT DATE: 20181201
